FAERS Safety Report 4550779-3 (Version None)
Quarter: 2004Q4

REPORT INFORMATION
  Report Type: 
  Country: None (occurrence: None)
  Receive Date: 20041217
  Receipt Date: 20040929
  Transmission Date: 20050328
  Serious: No
  Sender: FDA-Public Use
  Company Number: 2004-BP-09029BP(0)

PATIENT
  Age: 33 Year
  Sex: Female
  Weight: 48.5 kg

DRUGS (7)
  1. SPIRIVA [Suspect]
     Indication: ASTHMA
     Dosage: 18 MCG (18 MCG, 1 PUFF DAILY) IH
     Route: 055
     Dates: start: 20040721, end: 20040723
  2. FORADIL AEROLIZER (FORMOTEROL FUMARATE) [Concomitant]
  3. ALBUTEROL [Concomitant]
  4. COMBIVENT [Concomitant]
  5. FLONASE NS (FLUTICASONE PROPIONATE) [Concomitant]
  6. ZYRTEC [Concomitant]
  7. PULMICORT TURBOHALER (BUDESONIDE) [Concomitant]

REACTIONS (4)
  - ABDOMINAL PAIN UPPER [None]
  - DRUG INEFFECTIVE [None]
  - PRURITUS GENERALISED [None]
  - URTICARIA [None]
